FAERS Safety Report 5684696-2 (Version None)
Quarter: 2008Q1

REPORT INFORMATION
  Report Type: 
  Country: None (occurrence: None)
  Receive Date: 20080328
  Receipt Date: 20070816
  Transmission Date: 20080703
  Serious: No
  Sender: FDA-Public Use
  Company Number: US-BRISTOL-MYERS SQUIBB COMPANY-13832878

PATIENT
  Age: 49 Year
  Sex: Male

DRUGS (2)
  1. ERBITUX [Suspect]
     Indication: NEOPLASM MALIGNANT
     Route: 042
     Dates: start: 20070702, end: 20070702
  2. BENADRYL [Concomitant]
     Route: 042
     Dates: start: 20070702

REACTIONS (4)
  - DRUG ADMINISTRATION ERROR [None]
  - HEADACHE [None]
  - PYREXIA [None]
  - RASH [None]
